FAERS Safety Report 14045747 (Version 1)
Quarter: 2017Q4

REPORT INFORMATION
  Report Type: Spontaneous
  Country: JP (occurrence: JP)
  Receive Date: 20171005
  Receipt Date: 20171005
  Transmission Date: 20180321
  Serious: Yes (Other)
  Sender: FDA-Public Use
  Company Number: JP-SUN PHARMACEUTICAL INDUSTRIES LTD-2017RR-151369

PATIENT
  Age: 40 Year
  Sex: Female
  Weight: 49 kg

DRUGS (2)
  1. CLINDAMYCIN. [Suspect]
     Active Substance: CLINDAMYCIN
     Indication: PNEUMONIA STREPTOCOCCAL
     Route: 065
  2. BENZYL PENICILLIN G [Suspect]
     Active Substance: PENICILLIN G
     Indication: PNEUMONIA STREPTOCOCCAL
     Route: 065

REACTIONS (1)
  - Acute kidney injury [Recovering/Resolving]
